FAERS Safety Report 6241233-1 (Version None)
Quarter: 2009Q2

REPORT INFORMATION
  Report Type: 
  Country: None (occurrence: None)
  Receive Date: 20090623
  Receipt Date: 20090612
  Transmission Date: 20091009
  Serious: Yes (Hospitalization)
  Sender: FDA-Public Use
  Company Number: FR-MERCK-0906FRA00060

PATIENT
  Age: 45 Year
  Sex: Male

DRUGS (2)
  1. SINGULAIR [Suspect]
     Indication: ASTHMA
     Route: 048
  2. BUDESONIDE AND FORMOTEROL FUMARATE [Concomitant]
     Indication: ASTHMA

REACTIONS (1)
  - ALLERGIC GRANULOMATOUS ANGIITIS [None]
